FAERS Safety Report 5241964-6 (Version None)
Quarter: 2007Q1

REPORT INFORMATION
  Report Type: 
  Country: None (occurrence: None)
  Receive Date: 20070220
  Receipt Date: 20070208
  Transmission Date: 20070707
  Serious: Yes (Hospitalization)
  Sender: FDA-Public Use
  Company Number: FR-PFIZER INC-2007011353

PATIENT
  Sex: Female

DRUGS (8)
  1. SU-011,248 [Suspect]
     Indication: RENAL CELL CARCINOMA STAGE UNSPECIFIED
     Route: 048
     Dates: start: 20051212, end: 20060108
  2. SU-011,248 [Suspect]
     Route: 048
     Dates: start: 20060123, end: 20060402
  3. SU-011,248 [Suspect]
     Route: 048
  4. LEVOTHYROXINE SODIUM [Concomitant]
     Route: 048
  5. HYDROCORTISONE [Concomitant]
     Route: 048
     Dates: start: 20061115
  6. AGREAL [Concomitant]
  7. LASIX [Concomitant]
  8. DIFFU K [Concomitant]

REACTIONS (1)
  - GENERAL PHYSICAL HEALTH DETERIORATION [None]
